FAERS Safety Report 5818951-X (Version None)
Quarter: 2008Q3

REPORT INFORMATION
  Report Type: 
  Country: None (occurrence: None)
  Receive Date: 20080723
  Receipt Date: 20080714
  Transmission Date: 20090109
  Serious: Yes (Hospitalization, Other)
  Sender: FDA-Public Use
  Company Number: DE-BAYER-200817779GPV

PATIENT
  Age: 0 Hour
  Sex: Male

DRUGS (1)
  1. MIRENA [Suspect]
     Route: 050
     Dates: start: 20070601, end: 20080119

REACTIONS (2)
  - PREMATURE BABY [None]
  - SMALL FOR DATES BABY [None]
